FAERS Safety Report 7310622-6 (Version None)
Quarter: 2011Q1

REPORT INFORMATION
  Report Type: 
  Country: None (occurrence: None)
  Receive Date: 20110224
  Receipt Date: 20100510
  Transmission Date: 20110831
  Serious: No
  Sender: FDA-Public Use
  Company Number: US-BRISTOL-MYERS SQUIBB COMPANY-15098288

PATIENT
  Age: 67 Year
  Sex: Female
  Weight: 118 kg

DRUGS (8)
  1. LIPITOR [Concomitant]
  2. ATENOLOL [Concomitant]
  3. METFORMIN HCL [Suspect]
     Dates: start: 20100101
  4. CILOXAN [Concomitant]
  5. GLIPIZIDE [Concomitant]
  6. GLUCOPHAGE [Suspect]
     Dosage: 01/2010:SWITCHED TO GENERIC GLUCOPHAGE
  7. ATIVAN [Concomitant]
  8. COZAAR [Concomitant]

REACTIONS (2)
  - DRUG INEFFECTIVE [None]
  - NAUSEA [None]
